FAERS Safety Report 9643747 (Version 3)
Quarter: 2014Q1

REPORT INFORMATION
  Report Type: Report from Study
  Country: CA (occurrence: CA)
  Receive Date: 20131024
  Receipt Date: 20140325
  Transmission Date: 20141002
  Serious: Yes (Other)
  Sender: FDA-Public Use
  Company Number: CA-UCBSA-097021

PATIENT
  Age: 74 Year
  Sex: Male
  Weight: 84 kg

DRUGS (14)
  1. CIMZIA [Suspect]
     Indication: RHEUMATOID ARTHRITIS
     Route: 058
     Dates: start: 20130327, end: 20130927
  2. CIMZIA [Suspect]
     Indication: RHEUMATOID ARTHRITIS
     Route: 058
     Dates: start: 20130213, end: 20130313
  3. PREDNISONE [Suspect]
     Indication: RHEUMATOID ARTHRITIS
     Dosage: DOSE: 10 MG
  4. FOLIC ACID [Concomitant]
     Indication: SUPPLEMENTATION THERAPY
     Route: 048
  5. LACTULOSE [Concomitant]
     Dosage: PRN
  6. NEUPOGEN [Concomitant]
     Indication: LEUKOPENIA
     Dosage: DOSE: 300 MCG 2 X/WEEK
     Route: 058
  7. NEUPOGEN [Concomitant]
     Indication: NEUTROPENIA
     Dosage: DOSE: 300 MCG 2 X/WEEK
     Route: 058
  8. NEUPOGEN [Concomitant]
     Indication: LEUKOPENIA
     Dosage: DOSE: 480 MCG, 2/WEEK
     Route: 058
     Dates: start: 2013
  9. NEUPOGEN [Concomitant]
     Indication: NEUTROPENIA
     Dosage: DOSE: 480 MCG, 2/WEEK
     Route: 058
     Dates: start: 2013
  10. ACETYL SALICYLIC ACID (ASA) [Concomitant]
     Indication: CARDIOVASCULAR DISORDER
     Route: 048
  11. GABAPENTIN [Concomitant]
     Indication: ANALGESIC THERAPY
     Dosage: DOSE: 400 MG HS (AT BEDTIME)
     Route: 048
  12. B 12 [Concomitant]
     Dosage: MONTHLY
  13. CALCIUM/VIT D [Concomitant]
  14. NITRO SPRAY [Concomitant]
     Dosage: SPRAY PRN

REACTIONS (4)
  - Cellulitis [Recovered/Resolved]
  - Skin infection [Recovering/Resolving]
  - Chest X-ray [Not Recovered/Not Resolved]
  - Lower respiratory tract infection [Not Recovered/Not Resolved]
